FAERS Safety Report 16379892 (Version 3)
Quarter: 2019Q3

REPORT INFORMATION
  Report Type: Spontaneous
  Country: LT (occurrence: LT)
  Receive Date: 20190531
  Receipt Date: 20190925
  Transmission Date: 20191004
  Serious: Yes (Other)
  Sender: FDA-Public Use
  Company Number: LT-ANIPHARMA-2019-LT-000001

PATIENT
  Age: 51 Year
  Sex: Female
  Weight: 98 kg

DRUGS (12)
  1. DEXAMETHASONE. [Concomitant]
     Active Substance: DEXAMETHASONE
     Dosage: UNK
     Route: 065
  2. ENDOXAN [Suspect]
     Active Substance: CYCLOPHOSPHAMIDE
     Dosage: DOSE TEXT: 6 CYCLES / DOSE TEXT: 2 CYCLES
     Route: 048
     Dates: start: 20090611
  3. CARBOPLATIN. [Suspect]
     Active Substance: CARBOPLATIN
     Dosage: 6 CYCLES, STABILE DISEASE / 6 CYCLES /6 CYCLES / 6 CYCLES/ 2 CYCLES/ 2 CYCLES
     Route: 065
     Dates: start: 20180223, end: 20181009
  4. CISPLATIN. [Suspect]
     Active Substance: CISPLATIN
     Dosage: 6 CYCLES
     Route: 065
     Dates: start: 20090611, end: 20091012
  5. LORAZEPAM. [Concomitant]
     Active Substance: LORAZEPAM
     Dosage: UNK
     Route: 065
  6. GEMCITABINE. [Suspect]
     Active Substance: GEMCITABINE
     Dosage: UNK / DOSE TEXT: 6 CYCLES EVERY CYCLE
     Route: 065
     Dates: start: 20170220, end: 20180818
  7. ISOPTIN [Concomitant]
     Active Substance: VERAPAMIL HYDROCHLORIDE
     Dosage: 120 MG UNK
     Route: 065
  8. ANASTROZOLE. [Suspect]
     Active Substance: ANASTROZOLE
     Indication: OVARIAN CANCER STAGE I
     Dosage: UNK / UNK
     Route: 048
     Dates: start: 20181010, end: 20190222
  9. FENTANYL. [Concomitant]
     Active Substance: FENTANYL
     Dosage: 50 UG/INHAL
     Route: 065
  10. PACLITAXEL. [Suspect]
     Active Substance: PACLITAXEL
     Dosage: 6 CYCLES, STABILE DISEASE
     Route: 065
     Dates: start: 20100222, end: 20100601
  11. GABAPENTIN. [Concomitant]
     Active Substance: GABAPENTIN
     Dosage: UNK
     Route: 065
  12. DOXORUBICIN [Suspect]
     Active Substance: DOXORUBICIN
     Dosage: 6 CYCLES
     Route: 065
     Dates: start: 20180223, end: 20181009

REACTIONS (7)
  - Metastases to central nervous system [Unknown]
  - Metastases to retroperitoneum [Unknown]
  - Anaemia [Unknown]
  - Bone marrow failure [Unknown]
  - Metastases to lymph nodes [Unknown]
  - Neutropenia [Unknown]
  - Thrombocytopenia [Unknown]

NARRATIVE: CASE EVENT DATE: 201110
